FAERS Safety Report 5531133-4 (Version None)
Quarter: 2007Q4

REPORT INFORMATION
  Report Type: 
  Country: None (occurrence: None)
  Receive Date: 20071130
  Receipt Date: 20071122
  Transmission Date: 20080405
  Serious: Yes (Life-Threatening, Hospitalization, Other)
  Sender: FDA-Public Use
  Company Number: PE-ABBOTT-07P-127-0423848-00

PATIENT
  Age: 32 Year
  Sex: Female
  Weight: 48 kg

DRUGS (4)
  1. KALETRA [Suspect]
     Indication: HIV INFECTION
     Dosage: UNKNOWN-LAST TIME REGISTERED IN HISTORY JUL 2007
     Route: 048
     Dates: start: 20051123, end: 20060215
  2. KALETRA [Suspect]
  3. STAVUDINE [Concomitant]
     Indication: HIV INFECTION
  4. LAMIVUDINE [Concomitant]
     Indication: HIV INFECTION

REACTIONS (3)
  - CRYPTOCOCCOSIS [None]
  - OPPORTUNISTIC INFECTION [None]
  - PNEUMOCOCCAL BACTERAEMIA [None]
